FAERS Safety Report 5127524-6 (Version None)
Quarter: 2006Q4

REPORT INFORMATION
  Report Type: 
  Country: None (occurrence: None)
  Receive Date: 20061011
  Receipt Date: 20061003
  Transmission Date: 20070319
  Serious: Yes (Other)
  Sender: FDA-Public Use
  Company Number: 06-0125PO

PATIENT
  Sex: Female

DRUGS (1)
  1. MEFENAMIC ACID [Suspect]
     Dosage: UNK, UNK, PO
     Route: 048

REACTIONS (1)
  - BLOOD PRESSURE DECREASED [None]
